FAERS Safety Report 8761277 (Version 2)
Quarter: 2012Q4

REPORT INFORMATION
  Report Type: 
  Country: JP (occurrence: JP)
  Receive Date: 20120830
  Receipt Date: 20120910
  Transmission Date: 20130627
  Serious: Yes (Death, Hospitalization, Other)
  Sender: FDA-Public Use
  Company Number: JP-JNJFOC-20120811909

PATIENT
  Age: 69 Year
  Sex: Female

DRUGS (1)
  1. SIMPONI [Suspect]
     Indication: RHEUMATOID ARTHRITIS
     Route: 058
     Dates: start: 20120717

REACTIONS (7)
  - Disseminated intravascular coagulation [Fatal]
  - Acute respiratory failure [Fatal]
  - Urinary tract infection [Unknown]
  - Duodenal ulcer [Unknown]
  - Staphylococcal infection [Unknown]
  - Muscle abscess [Unknown]
  - Hernia [Unknown]
